FAERS Safety Report 14297443 (Version 1)
Quarter: 2017Q4

REPORT INFORMATION
  Report Type: Spontaneous
  Country: CN (occurrence: CN)
  Receive Date: 20171218
  Receipt Date: 20171218
  Transmission Date: 20180321
  Serious: Yes (Hospitalization)
  Sender: FDA-Public Use
  Company Number: CN-ELI_LILLY_AND_COMPANY-CN201712004633

PATIENT
  Sex: Male

DRUGS (2)
  1. HUMULIN R [Suspect]
     Active Substance: INSULIN HUMAN
     Indication: DIABETES MELLITUS
     Dosage: 16 U, TID
     Route: 058
     Dates: start: 2007, end: 20171207
  2. INSULIN, HUMAN [Suspect]
     Active Substance: INSULIN HUMAN
     Indication: DIABETES MELLITUS
     Dosage: 16 U, TID
     Route: 058
     Dates: start: 2007, end: 20171207

REACTIONS (2)
  - Drug dose omission [Unknown]
  - Diabetic complication [Unknown]

NARRATIVE: CASE EVENT DATE: 20171208
